FAERS Safety Report 25190086 (Version 1)
Quarter: 2025Q2

REPORT INFORMATION
  Report Type: Spontaneous
  Country: US (occurrence: None)
  Receive Date: 20250411
  Receipt Date: 20250411
  Transmission Date: 20250717
  Serious: Yes (Other)
  Sender: FDA-CTU
  Company Number: None

PATIENT
  Age: 66 Year
  Sex: Female

DRUGS (1)
  1. TREMFYA [Suspect]
     Active Substance: GUSELKUMAB
     Indication: Psoriasis
     Dosage: 100MG Q8W SUBCUTANEOUS
     Route: 058

REACTIONS (4)
  - Psoriasis [None]
  - Condition aggravated [None]
  - Fall [None]
  - Nerve compression [None]
